FAERS Safety Report 23248085 (Version 2)
Quarter: 2023Q4

REPORT INFORMATION
  Report Type: Spontaneous
  Country: JP (occurrence: JP)
  Receive Date: 20231130
  Receipt Date: 20231228
  Transmission Date: 20240109
  Serious: Yes (Hospitalization)
  Sender: FDA-Public Use
  Company Number: JP-JNJFOC-20220648793

PATIENT
  Age: 7 Decade
  Sex: Female
  Weight: 71 kg

DRUGS (24)
  1. UPTRAVI [Suspect]
     Active Substance: SELEXIPAG
     Indication: Pulmonary hypertension
     Route: 048
     Dates: start: 20211118, end: 20211201
  2. UPTRAVI [Suspect]
     Active Substance: SELEXIPAG
     Route: 048
  3. UPTRAVI [Suspect]
     Active Substance: SELEXIPAG
     Route: 048
  4. UPTRAVI [Suspect]
     Active Substance: SELEXIPAG
     Route: 048
     Dates: start: 20211202, end: 20211215
  5. UPTRAVI [Suspect]
     Active Substance: SELEXIPAG
     Route: 048
     Dates: start: 20211216, end: 20211222
  6. UPTRAVI [Suspect]
     Active Substance: SELEXIPAG
     Route: 048
     Dates: start: 20211223, end: 20220105
  7. UPTRAVI [Suspect]
     Active Substance: SELEXIPAG
     Route: 048
     Dates: start: 20220106, end: 20220119
  8. UPTRAVI [Suspect]
     Active Substance: SELEXIPAG
     Route: 048
     Dates: start: 20220120, end: 20220202
  9. UPTRAVI [Suspect]
     Active Substance: SELEXIPAG
     Route: 048
     Dates: start: 20220203, end: 20220216
  10. UPTRAVI [Suspect]
     Active Substance: SELEXIPAG
     Route: 048
     Dates: start: 20220217
  11. XARELTO [Concomitant]
     Active Substance: RIVAROXABAN
     Dates: start: 202006, end: 202009
  12. VALSARTAN [Concomitant]
     Active Substance: VALSARTAN
  13. DICLOFENAC SODIUM [Concomitant]
     Active Substance: DICLOFENAC\DICLOFENAC SODIUM
  14. MIROGABALIN BESYLATE [Concomitant]
     Active Substance: MIROGABALIN BESYLATE
  15. LANSOPRAZOLE [Concomitant]
     Active Substance: LANSOPRAZOLE
  16. REBAMIPIDE [Concomitant]
     Active Substance: REBAMIPIDE
  17. RISPERIDONE [Concomitant]
     Active Substance: RISPERIDONE
  18. LITHIUM CARBONATE [Concomitant]
     Active Substance: LITHIUM CARBONATE
  19. DULOXETINE [Concomitant]
     Active Substance: DULOXETINE
  20. LEVOMEPROMAZINE MALEATE [Concomitant]
     Active Substance: LEVOMEPROMAZINE MALEATE
     Indication: Diarrhoea
  21. AZOSEMIDE [Concomitant]
     Active Substance: AZOSEMIDE
     Dates: start: 20210909
  22. SPIRONOLACTONE [Concomitant]
     Active Substance: SPIRONOLACTONE
     Dates: start: 20211007, end: 20211117
  23. SPIRONOLACTONE [Concomitant]
     Active Substance: SPIRONOLACTONE
     Dates: start: 20211118
  24. OXYGEN [Concomitant]
     Active Substance: OXYGEN

REACTIONS (3)
  - Osteoarthritis [Recovered/Resolved]
  - Diarrhoea [Unknown]
  - Faeces soft [Recovered/Resolved]

NARRATIVE: CASE EVENT DATE: 20220106
